FAERS Safety Report 23292252 (Version 1)
Quarter: 2023Q4

REPORT INFORMATION
  Report Type: Spontaneous
  Country: US (occurrence: None)
  Receive Date: 20231212
  Receipt Date: 20231212
  Transmission Date: 20240110
  Serious: Yes (Other)
  Sender: FDA-Public Use
  Company Number: None

PATIENT
  Age: 75 Year
  Sex: Female

DRUGS (36)
  1. OPSUMIT [Suspect]
     Active Substance: MACITENTAN
     Indication: Pulmonary arterial hypertension
     Dosage: FREQUENCY : DAILY;?
     Route: 048
     Dates: start: 20200826
  2. TADALAFIL [Concomitant]
     Active Substance: TADALAFIL
  3. PREGABALIN [Concomitant]
     Active Substance: PREGABALIN
  4. TRAZODONE [Concomitant]
     Active Substance: TRAZODONE HYDROCHLORIDE
  5. METOPROLOL [Concomitant]
     Active Substance: METOPROLOL
  6. OMEPRAZOLE [Concomitant]
  7. DULOXETINE [Concomitant]
  8. ACETAMINOPHEN [Concomitant]
     Active Substance: ACETAMINOPHEN
  9. MILK OF MAGNESIA [Concomitant]
  10. ASCORBIC ACID [Concomitant]
  11. CETIRIZINE [Concomitant]
     Active Substance: CETIRIZINE HYDROCHLORIDE
  12. DEXAMETHASONE [Concomitant]
  13. FAMOTIDINE [Concomitant]
  14. ASPIRIN [Concomitant]
  15. CULTURELLE [Concomitant]
  16. THERA M PLUS [Concomitant]
  17. FISH OIL [Concomitant]
     Active Substance: FISH OIL
  18. CLEARLAX [Concomitant]
  19. VITAMIN B COMPLEX [Concomitant]
  20. ALBUTEROL HFA [Concomitant]
  21. BACLOFEN [Concomitant]
     Active Substance: BACLOFEN
  22. BENZONATATE [Concomitant]
  23. CALXIUM CARBONATE [Concomitant]
  24. PERIDEX [Concomitant]
  25. VITAMIN D3 [Concomitant]
  26. ALVESCO HFA [Concomitant]
  27. FEROUS SULFATE [Concomitant]
  28. FLONASE [Concomitant]
  29. FUROSEMIDE [Concomitant]
  30. LEVOTHYROXINE [Concomitant]
  31. MONTELUKAST [Concomitant]
  32. PATANOL OPHT DROP [Concomitant]
  33. ROSUVASTATIN [Concomitant]
  34. BIOTENE DRY MOUTH ORAL RINSE [Concomitant]
  35. SENNA [Concomitant]
  36. SIMETHICONE [Concomitant]

REACTIONS (2)
  - Wrong technique in product usage process [None]
  - Therapy interrupted [None]

NARRATIVE: CASE EVENT DATE: 20231211
